FAERS Safety Report 17805026 (Version 8)
Quarter: 2021Q4

REPORT INFORMATION
  Report Type: Spontaneous
  Country: PT (occurrence: PT)
  Receive Date: 20200520
  Receipt Date: 20211025
  Transmission Date: 20220303
  Serious: Yes (Hospitalization, Other)
  Sender: FDA-Public Use
  Company Number: PT-DSJP-DSU-2019-139252

PATIENT
  Age: 69 Year
  Sex: Male

DRUGS (11)
  1. ASPIRIN [Suspect]
     Active Substance: ASPIRIN
     Indication: Product used for unknown indication
     Dosage: UNK
     Route: 048
  2. LERCANIDIPINE [Suspect]
     Active Substance: LERCANIDIPINE
     Indication: Essential hypertension
     Dosage: UNK
     Route: 048
  3. OLMESARTAN [Suspect]
     Active Substance: OLMESARTAN
     Indication: Essential hypertension
     Dosage: UNK, AT A LOWER DOSE
     Route: 048
  4. OLMESARTAN [Suspect]
     Active Substance: OLMESARTAN
     Indication: Hypertension
     Dosage: UNK
     Route: 048
  5. METFORMIN\SITAGLIPTIN [Suspect]
     Active Substance: METFORMIN\SITAGLIPTIN
     Indication: Type 2 diabetes mellitus
     Dosage: UNK,AT A LOWER DOSE
     Route: 048
  6. OLMESARTAN MEDOXOMIL [Suspect]
     Active Substance: OLMESARTAN MEDOXOMIL
     Indication: Hypertension
     Dosage: UNK
     Route: 048
  7. OLMESARTAN MEDOXOMIL [Suspect]
     Active Substance: OLMESARTAN MEDOXOMIL
     Dosage: UNK, AT A LOWER DOSE
     Route: 048
  8. ASPIRIN [Concomitant]
     Active Substance: ASPIRIN
     Indication: Product used for unknown indication
     Dosage: UNK
     Route: 048
  9. LINAGLIPTIN [Concomitant]
     Active Substance: LINAGLIPTIN
     Indication: Type 2 diabetes mellitus
     Dosage: UNK
     Route: 065
  10. LERCANIDIPINE [Concomitant]
     Active Substance: LERCANIDIPINE
     Indication: Essential hypertension
     Dosage: UNK
     Route: 048
  11. METFORMIN HYDROCHLORIDE\SITAGLIPTIN PHOSPHATE [Concomitant]
     Active Substance: METFORMIN HYDROCHLORIDE\SITAGLIPTIN PHOSPHATE
     Indication: Type 2 diabetes mellitus
     Dosage: AT A LOWER DOSE
     Route: 048

REACTIONS (8)
  - Gastrointestinal disorder [Recovered/Resolved]
  - Diarrhoea [Recovered/Resolved]
  - Blood creatine increased [Recovered/Resolved]
  - Blood urea increased [Recovered/Resolved]
  - Sprue-like enteropathy [Recovered/Resolved]
  - Duodenitis [Recovered/Resolved]
  - Hyperuricaemia [Recovered/Resolved]
  - Hypercreatininaemia [Recovered/Resolved]
